FAERS Safety Report 20828313 (Version 2)
Quarter: 2022Q2

REPORT INFORMATION
  Report Type: Report from Study
  Country: IL (occurrence: IL)
  Receive Date: 20220513
  Receipt Date: 20220524
  Transmission Date: 20220720
  Serious: Yes (Hospitalization)
  Sender: FDA-Public Use
  Company Number: IL-ABBVIE-22P-163-4384769-00

PATIENT
  Age: 24 Year
  Sex: Female
  Weight: 45.2 kg

DRUGS (24)
  1. VENETOCLAX [Suspect]
     Active Substance: VENETOCLAX
     Indication: Acute myeloid leukaemia
     Route: 048
     Dates: start: 20220410, end: 20220505
  2. AZACITIDINE [Suspect]
     Active Substance: AZACITIDINE
     Indication: Acute myeloid leukaemia
     Dosage: DAY 1  7 OF EACH 28 DAY CYCLE
     Route: 058
     Dates: start: 20220410
  3. POLYETHYLENE GLYCOL 3350 [Concomitant]
     Active Substance: POLYETHYLENE GLYCOL 3350
     Indication: Laxative supportive care
     Route: 048
     Dates: start: 20220329, end: 20220501
  4. LETERMOVIR [Concomitant]
     Active Substance: LETERMOVIR
     Indication: Viral infection
     Route: 048
     Dates: start: 20220321
  5. LETERMOVIR [Concomitant]
     Active Substance: LETERMOVIR
     Indication: Prophylaxis
  6. POSACONAZOLE [Concomitant]
     Active Substance: POSACONAZOLE
     Indication: Fungal infection
     Route: 048
     Dates: start: 20220321, end: 20220501
  7. POSACONAZOLE [Concomitant]
     Active Substance: POSACONAZOLE
     Indication: Prophylaxis
  8. UNGUENTUM EMULSIFICANS AQUOSUM [Concomitant]
     Indication: Dry skin
     Route: 003
     Dates: start: 20220329, end: 20220501
  9. TEVACUTAN [Concomitant]
     Indication: Antifungal prophylaxis
     Route: 003
     Dates: start: 20220403, end: 20220501
  10. OMEPRAZOLE [Concomitant]
     Active Substance: OMEPRAZOLE
     Indication: Antacid therapy
     Route: 048
     Dates: start: 20220321
  11. OMEPRAZOLE [Concomitant]
     Active Substance: OMEPRAZOLE
     Indication: Prophylaxis
  12. SULFAMETHOXAZOLE\TRIMETHOPRIM [Concomitant]
     Active Substance: SULFAMETHOXAZOLE\TRIMETHOPRIM
     Indication: Bacterial infection
     Route: 048
     Dates: start: 20220410
  13. SULFAMETHOXAZOLE\TRIMETHOPRIM [Concomitant]
     Active Substance: SULFAMETHOXAZOLE\TRIMETHOPRIM
     Indication: Prophylaxis
  14. BABY CREAM (OLEA EUROPAEA OIL) [Concomitant]
     Indication: Dry skin
     Route: 003
     Dates: start: 20220321, end: 20220501
  15. CYCLOSPORINE [Concomitant]
     Active Substance: CYCLOSPORINE
     Indication: Prophylaxis against transplant rejection
     Route: 048
     Dates: start: 20220220
  16. ACYCLOVIR [Concomitant]
     Active Substance: ACYCLOVIR
     Indication: Viral infection
     Route: 048
     Dates: start: 20220321
  17. ACYCLOVIR [Concomitant]
     Active Substance: ACYCLOVIR
     Indication: Prophylaxis
  18. BEPANTHEN EYE DROPS [Concomitant]
     Indication: Eye lubrication therapy
     Route: 047
     Dates: start: 20220321, end: 20220501
  19. BEPANTHEN EYE DROPS [Concomitant]
     Indication: Bacterial infection
     Route: 047
     Dates: start: 20220501
  20. BEPANTHEN EYE DROPS [Concomitant]
     Indication: Therapeutic procedure
  21. MINERAL OIL EMULSION\PETROLATUM [Concomitant]
     Active Substance: MINERAL OIL EMULSION\PETROLATUM
     Indication: Eye lubrication therapy
     Route: 047
     Dates: start: 20220321, end: 20220501
  22. BISACODYL [Concomitant]
     Active Substance: BISACODYL
     Indication: Constipation prophylaxis
     Route: 048
     Dates: start: 20220321, end: 20220501
  23. BETAMETHASONE [Concomitant]
     Active Substance: BETAMETHASONE
     Indication: Dry skin prophylaxis
     Route: 003
     Dates: start: 20220321, end: 20220501
  24. PREDNISONE [Concomitant]
     Active Substance: PREDNISONE
     Indication: Immunosuppressant drug therapy
     Route: 048
     Dates: start: 20220501

REACTIONS (1)
  - Febrile neutropenia [Recovered/Resolved]

NARRATIVE: CASE EVENT DATE: 20220506
